FAERS Safety Report 5334282-9 (Version None)
Quarter: 2007Q2

REPORT INFORMATION
  Report Type: 
  Country: None (occurrence: None)
  Receive Date: 20070525
  Receipt Date: 20070516
  Transmission Date: 20071010
  Serious: Yes (Hospitalization)
  Sender: FDA-Public Use
  Company Number: PHBS2006JP05008

PATIENT
  Age: 36 Year
  Sex: Female

DRUGS (2)
  1. GLEEVEC [Suspect]
     Indication: GASTROINTESTINAL STROMAL TUMOUR
     Dosage: 200 MG PER 3 DAYS
     Route: 048
     Dates: start: 20030101
  2. GLEEVEC [Suspect]
     Dosage: 50 MG, Q48H
     Route: 048

REACTIONS (8)
  - CAESAREAN SECTION [None]
  - DISEASE PROGRESSION [None]
  - DRUG EXPOSURE DURING PREGNANCY [None]
  - METASTASES TO LYMPH NODES [None]
  - NEUTROPHIL COUNT DECREASED [None]
  - NORMAL NEWBORN [None]
  - PANCYTOPENIA [None]
  - WHITE BLOOD CELL COUNT DECREASED [None]
